FAERS Safety Report 10073417 (Version 1)
Quarter: 2014Q2

REPORT INFORMATION
  Report Type: Spontaneous
  Country: FR (occurrence: FR)
  Receive Date: 20140411
  Receipt Date: 20140411
  Transmission Date: 20141212
  Serious: Yes (Other)
  Sender: FDA-Public Use
  Company Number: FR-ABBVIE-14K-056-1220678-00

PATIENT
  Age: 55 Year
  Sex: Male

DRUGS (3)
  1. NORVIR [Suspect]
     Indication: HIV INFECTION
     Route: 048
     Dates: start: 20061013, end: 20130301
  2. REYATAZ [Suspect]
     Indication: HIV INFECTION
     Route: 048
     Dates: start: 20061013, end: 20130301
  3. TRUVADA [Suspect]
     Indication: HIV INFECTION
     Route: 048
     Dates: start: 20061013, end: 20130301

REACTIONS (4)
  - Nephropathy toxic [Unknown]
  - Renal impairment [Recovered/Resolved]
  - Renal colic [Unknown]
  - Renal colic [Unknown]
